FAERS Safety Report 5676097-8 (Version None)
Quarter: 2008Q1

REPORT INFORMATION
  Report Type: 
  Country: None (occurrence: None)
  Receive Date: 20080321
  Receipt Date: 20080311
  Transmission Date: 20080703
  Serious: Yes (Hospitalization)
  Sender: FDA-Public Use
  Company Number: US-BAYER-200816741NA

PATIENT
  Age: 56 Year
  Sex: Female

DRUGS (2)
  1. NEXAVAR [Suspect]
     Indication: RENAL CELL CARCINOMA
     Dosage: TOTAL DAILY DOSE: 800 MG  UNIT DOSE: 200 MG
     Route: 048
     Dates: start: 20080101, end: 20080307
  2. ZOMETA [Concomitant]

REACTIONS (5)
  - BLOOD CULTURE POSITIVE [None]
  - CHILLS [None]
  - DIARRHOEA [None]
  - PYREXIA [None]
  - VOMITING [None]
